FAERS Safety Report 6802564-7 (Version None)
Quarter: 2010Q2

REPORT INFORMATION
  Report Type: 
  Country: None (occurrence: None)
  Receive Date: 20100629
  Receipt Date: 20090112
  Transmission Date: 20101027
  Serious: No
  Sender: FDA-Public Use
  Company Number: US-PFIZER INC-2005133342

PATIENT
  Sex: Female
  Weight: 56.7 kg

DRUGS (6)
  1. ARTHROTEC [Suspect]
     Indication: PAIN
     Dosage: 100MG/400MCG
     Route: 048
     Dates: start: 20040101
  2. LYRICA [Suspect]
     Indication: NEURALGIA
     Route: 048
     Dates: start: 20060524
  3. DILANTIN [Concomitant]
     Route: 065
  4. TYLENOL [Concomitant]
     Route: 065
  5. OGEN [Concomitant]
     Route: 065
  6. PEPCID [Concomitant]
     Route: 065

REACTIONS (9)
  - ABDOMINAL PAIN UPPER [None]
  - AMNESIA [None]
  - DIARRHOEA [None]
  - DIZZINESS [None]
  - DRUG ADMINISTRATION ERROR [None]
  - DRUG EFFECT DECREASED [None]
  - EXOSTOSIS [None]
  - FLATULENCE [None]
  - SOMNOLENCE [None]
